FAERS Safety Report 26189772 (Version 1)
Quarter: 2025Q4

REPORT INFORMATION
  Report Type: Spontaneous
  Country: AU (occurrence: AU)
  Receive Date: 20251223
  Receipt Date: 20251223
  Transmission Date: 20260118
  Serious: Yes (Other)
  Sender: AMGEN
  Company Number: AU-AMGEN-AUSSP2025249948

PATIENT
  Age: 27 Year
  Sex: Male

DRUGS (2)
  1. INFLIXIMAB [Suspect]
     Active Substance: INFLIXIMAB
     Indication: Colitis ulcerative
     Dosage: UNK
     Route: 065
  2. USTEKINUMAB [Suspect]
     Active Substance: USTEKINUMAB
     Indication: Colitis ulcerative
     Dosage: UNK
     Route: 065

REACTIONS (4)
  - Colitis ulcerative [Unknown]
  - Hidradenitis [Unknown]
  - Spondyloarthropathy [Unknown]
  - Palmoplantar pustulosis [Recovering/Resolving]
